FAERS Safety Report 8290245-5 (Version None)
Quarter: 2012Q2

REPORT INFORMATION
  Report Type: 
  Country: None (occurrence: None)
  Receive Date: 20120417
  Receipt Date: 20120405
  Transmission Date: 20120825
  Serious: Yes (Hospitalization)
  Sender: FDA-Public Use
  Company Number: GB-JNJFOC-20120407133

PATIENT
  Sex: Female

DRUGS (2)
  1. XARELTO [Suspect]
     Indication: KNEE ARTHROPLASTY
     Route: 048
     Dates: start: 20110811
  2. ENOXAPARIN [Concomitant]
     Indication: KNEE ARTHROPLASTY

REACTIONS (1)
  - PULMONARY EMBOLISM [None]
